FAERS Safety Report 15703905 (Version 1)
Quarter: 2018Q4

REPORT INFORMATION
  Report Type: Report from Study
  Country: BR (occurrence: BR)
  Receive Date: 20181210
  Receipt Date: 20181210
  Transmission Date: 20190205
  Serious: Yes (Other)
  Sender: FDA-Public Use
  Company Number: BR-ROCHE-2227000

PATIENT
  Sex: Female
  Weight: 70 kg

DRUGS (1)
  1. XOLAIR [Suspect]
     Active Substance: OMALIZUMAB
     Indication: URTICARIA
     Dosage: 300 MG, QMO
     Route: 065
     Dates: start: 2018

REACTIONS (10)
  - Urticaria [Not Recovered/Not Resolved]
  - Eye swelling [Not Recovered/Not Resolved]
  - Irritability [Unknown]
  - Temperature intolerance [Not Recovered/Not Resolved]
  - Immunodeficiency [Not Recovered/Not Resolved]
  - Mouth swelling [Not Recovered/Not Resolved]
  - Swelling [Not Recovered/Not Resolved]
  - Skin injury [Not Recovered/Not Resolved]
  - Concomitant disease aggravated [Not Recovered/Not Resolved]
  - Pruritus [Not Recovered/Not Resolved]
